FAERS Safety Report 4390709-0 (Version None)
Quarter: 2004Q3

REPORT INFORMATION
  Report Type: 
  Country: None (occurrence: None)
  Receive Date: 20040701
  Receipt Date: 20040621
  Transmission Date: 20050211
  Serious: Yes (Death)
  Sender: FDA-Public Use
  Company Number: 2004042090

PATIENT
  Age: 87 Year
  Sex: Female

DRUGS (1)
  1. LISTERINE (EUCALYPTOL, MENTHOL, METHYL SALICYLATE, THYMOL) [Suspect]
     Indication: NASOPHARYNGITIS
     Dosage: 1 TSP DAILY, ORAL
     Route: 048

REACTIONS (1)
  - DEATH [None]
